FAERS Safety Report 8883508 (Version 1)
Quarter: 2012Q4

REPORT INFORMATION
  Report Type: Report from Study
  Country: GB (occurrence: GB)
  Receive Date: 20121102
  Receipt Date: 20121102
  Transmission Date: 20130627
  Serious: Yes (Death, Hospitalization)
  Sender: FDA-Public Use
  Company Number: GB-ABBOTT-12P-167-1002729-00

PATIENT
  Age: 88 Year
  Sex: Female

DRUGS (1)
  1. HUMIRA [Suspect]
     Indication: RHEUMATOID ARTHRITIS
     Route: 058
     Dates: start: 20050927

REACTIONS (7)
  - Renal failure acute [Fatal]
  - Pneumonia [Fatal]
  - Sepsis [Fatal]
  - Myocardial ischaemia [Fatal]
  - Hypertension [Fatal]
  - Renal failure chronic [Fatal]
  - Dyspnoea [Unknown]
